FAERS Safety Report 8550709-3 (Version None)
Quarter: 2012Q3

REPORT INFORMATION
  Report Type: 
  Country: None (occurrence: None)
  Receive Date: 20120730
  Receipt Date: 20120726
  Transmission Date: 20120928
  Serious: Yes (Other)
  Sender: FDA-Public Use
  Company Number: JP-GLAXOSMITHKLINE-B0649415A

PATIENT
  Sex: Male

DRUGS (2)
  1. BASEN [Concomitant]
     Indication: DIABETES MELLITUS
     Dosage: 3IUAX PER DAY
     Route: 048
  2. DUTASTERIDE [Suspect]
     Indication: DYSURIA
     Dosage: .5MG PER DAY
     Route: 048
     Dates: start: 20100120, end: 20100331

REACTIONS (2)
  - BLOOD GLUCOSE INCREASED [None]
  - DIABETES MELLITUS [None]
